FAERS Safety Report 9194264 (Version 4)
Quarter: 2013Q2

REPORT INFORMATION
  Report Type: Report from Study
  Country: IT (occurrence: IT)
  Receive Date: 20130327
  Receipt Date: 20130619
  Transmission Date: 20140414
  Serious: Yes (Hospitalization)
  Sender: FDA-Public Use
  Company Number: IT-BAXTER-2013BAX010903

PATIENT
  Age: 71 Year
  Sex: Male
  Weight: 78 kg

DRUGS (18)
  1. ENDOXAN BAXTER [Suspect]
     Indication: B-CELL LYMPHOMA
     Route: 042
     Dates: start: 20121206
  2. ENDOXAN BAXTER [Suspect]
     Route: 042
     Dates: start: 20130208
  3. ENDOXAN BAXTER [Suspect]
     Route: 042
     Dates: start: 20130301
  4. RITUXIMAB [Suspect]
     Indication: B-CELL LYMPHOMA
     Route: 042
     Dates: start: 20121206
  5. RITUXIMAB [Suspect]
     Route: 042
     Dates: start: 20130208
  6. RITUXIMAB [Suspect]
     Route: 042
     Dates: start: 20130301
  7. DOXORUBICIN [Suspect]
     Indication: B-CELL LYMPHOMA
     Route: 042
     Dates: start: 20121206
  8. DOXORUBICIN [Suspect]
     Route: 042
     Dates: start: 20130208
  9. DOXORUBICIN [Suspect]
     Route: 042
     Dates: start: 20130301
  10. VINCRISTINE [Suspect]
     Indication: B-CELL LYMPHOMA
     Route: 040
     Dates: start: 20121206
  11. VINCRISTINE [Suspect]
     Route: 040
     Dates: start: 20130208
  12. VINCRISTINE [Suspect]
     Route: 040
     Dates: start: 20130301
  13. PREDNISONE [Suspect]
     Indication: B-CELL LYMPHOMA
     Route: 048
     Dates: start: 20121206
  14. PREDNISONE [Suspect]
     Route: 048
     Dates: start: 20130212
  15. PREDNISONE [Suspect]
     Route: 048
     Dates: start: 20130305
  16. ACYCLOVIR [Concomitant]
     Indication: PROPHYLAXIS
     Route: 065
     Dates: start: 20121206
  17. GRANISETRON [Concomitant]
     Indication: PROPHYLAXIS
     Route: 065
     Dates: start: 20121206
  18. OMEPRAZOLE [Concomitant]
     Indication: PROPHYLAXIS
     Route: 065
     Dates: start: 20121206

REACTIONS (1)
  - Pneumonia [Recovered/Resolved]
